FAERS Safety Report 4913100-4 (Version None)
Quarter: 2006Q1

REPORT INFORMATION
  Report Type: 
  Country: None (occurrence: None)
  Receive Date: 20060210
  Receipt Date: 20060125
  Transmission Date: 20060701
  Serious: Yes (Other)
  Sender: FDA-Public Use
  Company Number: 8014904

PATIENT
  Age: 8 Month
  Sex: Female
  Weight: 9.7 kg

DRUGS (1)
  1. KEPPRA [Suspect]
     Indication: EPILEPSY
     Dosage: 200 MG 2/D
     Dates: start: 20050901

REACTIONS (1)
  - PRECOCIOUS PUBERTY [None]
